FAERS Safety Report 11225293 (Version 10)
Quarter: 2019Q1

REPORT INFORMATION
  Report Type: Spontaneous
  Country: CA (occurrence: CA)
  Receive Date: 20150629
  Receipt Date: 20190319
  Transmission Date: 20190417
  Serious: Yes (Death, Life-Threatening, Hospitalization, Disabling)
  Sender: FDA-Public Use
  Company Number: CA-ACTELION-A-NJ2015-119816

PATIENT
  Age: 65 Year
  Sex: Female
  Weight: 66.67 kg

DRUGS (25)
  1. SLOW K [Concomitant]
     Active Substance: POTASSIUM CHLORIDE
  2. TYLENOL [Concomitant]
     Active Substance: ACETAMINOPHEN
     Dosage: UNK, PRN
  3. CARIPUL [Suspect]
     Active Substance: EPOPROSTENOL
     Dosage: 90000 NG, CONT INFUS
     Route: 042
  4. WARFARIN [Concomitant]
     Active Substance: WARFARIN
  5. ALDACTONE [Concomitant]
     Active Substance: SPIRONOLACTONE
     Dosage: 12.5 MG, UNK
  6. NEXIUM [Concomitant]
     Active Substance: ESOMEPRAZOLE MAGNESIUM
  7. VITAMIN B12 [Concomitant]
     Active Substance: CYANOCOBALAMIN
  8. VITAMIN B COMPLEX [Concomitant]
     Active Substance: CYANOCOBALAMIN\DEXPANTHENOL\NIACINAMIDE\PYRIDOXINE HYDROCHLORIDE\RIBOFLAVIN 5^-PHOSPHATE SODIUM\THIAMINE HYDROCHLORIDE\VITAMIN B COMPLEX
  9. LASIX [Concomitant]
     Active Substance: FUROSEMIDE
     Dosage: 80 MG, UNK
  10. CRESTOR [Concomitant]
     Active Substance: ROSUVASTATIN CALCIUM
  11. ALDACTONE [Concomitant]
     Active Substance: SPIRONOLACTONE
     Dosage: 75 MG, UNK
  12. GLYBURIDE. [Concomitant]
     Active Substance: GLYBURIDE
  13. OXYGEN. [Concomitant]
     Active Substance: OXYGEN
     Dosage: 3 LITERS, UNK
     Route: 045
  14. CARIPUL [Suspect]
     Active Substance: EPOPROSTENOL
     Indication: PULMONARY ARTERIAL HYPERTENSION
     Dosage: 75000 MG/ML, CONT INFUS
     Route: 042
     Dates: start: 20140915
  15. FOLIC ACID. [Concomitant]
     Active Substance: FOLIC ACID
  16. CARIPUL [Suspect]
     Active Substance: EPOPROSTENOL
     Dosage: 9 NG, QD
     Route: 042
  17. VENTOLIN [Concomitant]
     Active Substance: ALBUTEROL SULFATE
  18. SYNTHROID [Concomitant]
     Active Substance: LEVOTHYROXINE SODIUM
  19. NOVORAPID [Concomitant]
     Active Substance: INSULIN ASPART
  20. TYLENOL WITH CODEINE [Concomitant]
     Active Substance: ACETAMINOPHEN\CODEINE PHOSPHATE
     Dosage: UNK, PRN
  21. REVATIO [Suspect]
     Active Substance: SILDENAFIL CITRATE
     Indication: PULMONARY ARTERIAL HYPERTENSION
     Dosage: 20 MG, TID
     Route: 048
     Dates: start: 20091203
  22. IRON [Concomitant]
     Active Substance: IRON
  23. OPSUMIT [Suspect]
     Active Substance: MACITENTAN
     Indication: PULMONARY ARTERIAL HYPERTENSION
     Dosage: UNK
     Route: 048
  24. CODEINE CONTIN [Concomitant]
     Active Substance: CODEINE SULFATE
  25. LANTUS [Concomitant]
     Active Substance: INSULIN GLARGINE

REACTIONS (31)
  - Nausea [Not Recovered/Not Resolved]
  - Body temperature increased [Not Recovered/Not Resolved]
  - Impaired gastric emptying [Not Recovered/Not Resolved]
  - Cough [Unknown]
  - Condition aggravated [Not Recovered/Not Resolved]
  - Haemoglobin decreased [Not Recovered/Not Resolved]
  - Confusional state [Not Recovered/Not Resolved]
  - Chest discomfort [Not Recovered/Not Resolved]
  - Stress [Recovered/Resolved]
  - Fall [Unknown]
  - Wrong dose [Not Recovered/Not Resolved]
  - Malaise [Not Recovered/Not Resolved]
  - Pneumonia [Not Recovered/Not Resolved]
  - Frustration tolerance decreased [Not Recovered/Not Resolved]
  - Oxygen saturation decreased [Not Recovered/Not Resolved]
  - Pallor [Recovered/Resolved]
  - Death [Fatal]
  - Abdominal discomfort [Not Recovered/Not Resolved]
  - Catheter site infection [Not Recovered/Not Resolved]
  - Dyspnoea [Not Recovered/Not Resolved]
  - Headache [Not Recovered/Not Resolved]
  - Therapy non-responder [Not Recovered/Not Resolved]
  - Weight decreased [Not Recovered/Not Resolved]
  - Contusion [Unknown]
  - Arthralgia [Unknown]
  - Device breakage [Not Recovered/Not Resolved]
  - Chest injury [Unknown]
  - Device leakage [Not Recovered/Not Resolved]
  - Decreased appetite [Not Recovered/Not Resolved]
  - Increased bronchial secretion [Not Recovered/Not Resolved]
  - Device malfunction [Recovered/Resolved]

NARRATIVE: CASE EVENT DATE: 20150613
